FAERS Safety Report 7605563-0 (Version None)
Quarter: 2011Q3

REPORT INFORMATION
  Report Type: 
  Country: None (occurrence: None)
  Receive Date: 20110713
  Receipt Date: 20110427
  Transmission Date: 20111222
  Serious: Yes (Hospitalization, Other)
  Sender: FDA-Public Use
  Company Number: BR-BAYER-201020724LA

PATIENT
  Age: 44 Year
  Sex: Female

DRUGS (17)
  1. LISADOR [Concomitant]
  2. ACETAMINOPHEN [Concomitant]
  3. ASPIRIN [Concomitant]
     Indication: HYPERTENSION
     Route: 048
  4. CAPTOPRIL [Concomitant]
     Indication: HYPERTENSION
     Route: 048
     Dates: start: 20050101
  5. ACETAMINOPHEN [Concomitant]
     Indication: PAIN
     Route: 048
  6. OMEPRAZOLE [Concomitant]
     Indication: GASTROINTESTINAL DISORDER
     Dosage: 2 DF, QD
     Route: 048
  7. LISADOR [Concomitant]
     Indication: PAIN
     Route: 048
  8. LEVOTHYROXINE SODIUM [Suspect]
     Indication: THYROID NEOPLASM
     Dosage: 1 DF, QD
     Route: 048
     Dates: start: 20060101, end: 20060101
  9. BETASERON [Suspect]
     Indication: MULTIPLE SCLEROSIS
     Dosage: BETAJECT
     Route: 058
     Dates: start: 19960101
  10. ATENOLOL [Concomitant]
     Indication: HYPERTENSION
     Route: 048
     Dates: start: 20100501
  11. HYGROTON [Concomitant]
     Indication: HYPERTENSION
     Route: 048
  12. SERTRALINE [Concomitant]
     Dosage: 2 DF, QD
     Route: 048
     Dates: start: 20110101
  13. LEVOTHYROXINE SODIUM [Suspect]
     Indication: THYROID CYST
  14. ENALAPRIL MALEATE [Concomitant]
     Indication: HYPERTENSION
     Route: 048
     Dates: start: 20100901
  15. SIMVASTATIN [Concomitant]
     Route: 048
     Dates: start: 20050101
  16. TEGRETOL [Concomitant]
     Indication: NERVOUS SYSTEM DISORDER
     Dosage: 1000 MG, QD
     Route: 048
  17. TIMOLOL MALEATE [Concomitant]
     Indication: GLAUCOMA
     Dosage: UNK
     Route: 047

REACTIONS (22)
  - CHEST DISCOMFORT [None]
  - CARDIAC DISORDER [None]
  - PAIN [None]
  - HYPERTENSION [None]
  - HEPATIC STEATOSIS [None]
  - ARTERIOSCLEROSIS [None]
  - WHITE BLOOD CELL COUNT DECREASED [None]
  - LEUKAEMIA [None]
  - DIZZINESS [None]
  - DYSPNOEA [None]
  - PLATELET COUNT DECREASED [None]
  - BURNING SENSATION [None]
  - ARRHYTHMIA [None]
  - DIABETES MELLITUS [None]
  - THYROID NEOPLASM [None]
  - SKIN REACTION [None]
  - THYROID CYST [None]
  - DYSPHONIA [None]
  - NAUSEA [None]
  - HYPERTENSIVE CRISIS [None]
  - FATIGUE [None]
  - HYPERSENSITIVITY [None]
